FAERS Safety Report 4696848-9 (Version None)
Quarter: 2005Q2

REPORT INFORMATION
  Report Type: 
  Country: None (occurrence: None)
  Receive Date: 20050620
  Receipt Date: 20050609
  Transmission Date: 20051028
  Serious: Yes (Hospitalization, Disabling)
  Sender: FDA-Public Use
  Company Number: HQWYE344309JUN05

PATIENT
  Age: 71 Year
  Sex: Female

DRUGS (10)
  1. CORDARONE [Suspect]
     Indication: ATRIAL FIBRILLATION
     Dosage: 400 MG 1X PER 1 DAY ORAL
     Route: 048
     Dates: start: 20041115, end: 20041214
  2. ASPIRIN [Concomitant]
  3. PLAVIX [Concomitant]
  4. METOPROLOL TARTRATE [Concomitant]
  5. NITRO-DUR [Concomitant]
  6. DILTIAZEM [Concomitant]
  7. LEVOTHYROXINE SODIUM [Concomitant]
  8. FOSAMAX [Concomitant]
  9. PANTOLOC (PANTOPRAZOLE) [Concomitant]
  10. LIPITOR [Concomitant]

REACTIONS (8)
  - ASTHENIA [None]
  - BLOOD ALKALINE PHOSPHATASE INCREASED [None]
  - GAMMA-GLUTAMYLTRANSFERASE INCREASED [None]
  - HEPATIC FUNCTION ABNORMAL [None]
  - NAUSEA [None]
  - PLATELET COUNT DECREASED [None]
  - PLEURAL EFFUSION [None]
  - RED BLOOD CELL SEDIMENTATION RATE INCREASED [None]
